FAERS Safety Report 9155024 (Version 1)
Quarter: 2013Q1

REPORT INFORMATION
  Report Type: Report from Study
  Country: US (occurrence: US)
  Receive Date: 20130311
  Receipt Date: 20130311
  Transmission Date: 20140127
  Serious: No
  Sender: FDA-Public Use
  Company Number: US-ABBOTT-12P-163-0966199-00

PATIENT
  Sex: Female
  Weight: 68.1 kg

DRUGS (2)
  1. LUPRON DEPOT 11.25 MG [Suspect]
     Indication: ENDOMETRIOSIS
     Route: 050
     Dates: start: 2010, end: 2010
  2. LUPRON DEPOT 11.25 MG [Suspect]
     Route: 050
     Dates: start: 201111

REACTIONS (2)
  - Bone pain [Not Recovered/Not Resolved]
  - Metrorrhagia [Recovered/Resolved]
